FAERS Safety Report 20684546 (Version 18)
Quarter: 2025Q4

REPORT INFORMATION
  Report Type: Report from Study
  Country: US (occurrence: US)
  Receive Date: 20220407
  Receipt Date: 20251225
  Transmission Date: 20260118
  Serious: Yes (Hospitalization, Other)
  Sender: TAKEDA
  Company Number: US-TAKEDA-2022TUS021484

PATIENT
  Age: 62 Year
  Sex: Female

DRUGS (4)
  1. HUMAN IMMUNOGLOBULIN G [Suspect]
     Active Substance: HUMAN IMMUNOGLOBULIN G
     Indication: Primary immunodeficiency syndrome
     Dosage: UNK
  2. HUMAN IMMUNOGLOBULIN G [Suspect]
     Active Substance: HUMAN IMMUNOGLOBULIN G
     Indication: IgG deficiency
     Dosage: 25 GRAM, Q2WEEKS
  3. HUMAN IMMUNOGLOBULIN G [Suspect]
     Active Substance: HUMAN IMMUNOGLOBULIN G
     Indication: Hypogammaglobulinaemia
  4. LISINOPRIL [Suspect]
     Active Substance: LISINOPRIL
     Indication: Product used for unknown indication
     Dosage: UNK

REACTIONS (23)
  - Pulmonary thrombosis [Unknown]
  - Thrombosis [Recovering/Resolving]
  - Eye disorder [Unknown]
  - Bacterial infection [Unknown]
  - Multiple allergies [Unknown]
  - Muscle strain [Unknown]
  - Fall [Unknown]
  - Limb injury [Unknown]
  - Nasopharyngitis [Not Recovered/Not Resolved]
  - Viral infection [Recovering/Resolving]
  - Seasonal allergy [Unknown]
  - Drug hypersensitivity [Unknown]
  - COVID-19 [Unknown]
  - Urinary tract infection [Recovered/Resolved]
  - Inappropriate schedule of product administration [Unknown]
  - Sleep apnoea syndrome [Unknown]
  - Product dose omission in error [Unknown]
  - Sinusitis [Unknown]
  - Influenza [Unknown]
  - Contusion [Unknown]
  - Back pain [Recovering/Resolving]
  - Pain [Recovering/Resolving]
  - Fatigue [Recovering/Resolving]

NARRATIVE: CASE EVENT DATE: 20210719
